FAERS Safety Report 6073788-4 (Version None)
Quarter: 2009Q1

REPORT INFORMATION
  Report Type: 
  Country: None (occurrence: None)
  Receive Date: 20090209
  Receipt Date: 20090209
  Transmission Date: 20090719
  Serious: Yes (Death, Hospitalization)
  Sender: FDA-Public Use
  Company Number: None

PATIENT
  Age: 68 Year
  Sex: Male
  Weight: 113.4 kg

DRUGS (7)
  1. VESICARE [Suspect]
     Indication: HYPERTONIC BLADDER
     Dosage: 5 MG, ORAL
     Route: 048
     Dates: start: 20080821, end: 20080821
  2. LISINOPRIL [Suspect]
     Dosage: 40 MG, 2 20 MG UID, QD, ORAL
     Route: 048
  3. TERAZOSIN HCL [Concomitant]
  4. TRAMADOL HCL [Concomitant]
  5. ETODOLAC [Concomitant]
  6. LASIX [Concomitant]
  7. RANITIDINE [Concomitant]

REACTIONS (20)
  - ANGIOEDEMA [None]
  - ARTERIOSCLEROSIS CORONARY ARTERY [None]
  - BENIGN PROSTATIC HYPERPLASIA [None]
  - CARDIAC HYPERTROPHY [None]
  - CARDIO-RESPIRATORY ARREST [None]
  - DYSARTHRIA [None]
  - GASTRITIS [None]
  - GENERAL PHYSICAL HEALTH DETERIORATION [None]
  - HEPATIC CONGESTION [None]
  - HEPATIC NECROSIS [None]
  - HEPATIC STEATOSIS [None]
  - HYPERSENSITIVITY [None]
  - LEFT VENTRICULAR HYPERTROPHY [None]
  - NO THERAPEUTIC RESPONSE [None]
  - PLEURAL EFFUSION [None]
  - PULMONARY CONGESTION [None]
  - PULMONARY OEDEMA [None]
  - PULSE ABSENT [None]
  - SILICOSIS [None]
  - SPLENOMEGALY [None]
